FAERS Safety Report 4588840-X (Version None)
Quarter: 2005Q1

REPORT INFORMATION
  Report Type: 
  Country: None (occurrence: None)
  Receive Date: 20050222
  Receipt Date: 20041022
  Transmission Date: 20050727
  Serious: Yes (Other)
  Sender: FDA-Public Use
  Company Number: US-GLAXOSMITHKLINE-A0530899A

PATIENT
  Age: 56 Year
  Sex: Female

DRUGS (5)
  1. PAXIL CR [Suspect]
     Indication: GENERALISED ANXIETY DISORDER
     Dosage: 25MG PER DAY
     Route: 048
  2. SYNTHROID [Concomitant]
  3. CRESTOR [Concomitant]
  4. DECONGESTANT [Concomitant]
  5. PREDNISONE [Concomitant]

REACTIONS (9)
  - ANGER [None]
  - COUGH [None]
  - DECREASED APPETITE [None]
  - FATIGUE [None]
  - MYALGIA [None]
  - PALPITATIONS [None]
  - PULMONARY CONGESTION [None]
  - PYREXIA [None]
  - VOMITING [None]
